FAERS Safety Report 8401425-X (Version None)
Quarter: 2012Q2

REPORT INFORMATION
  Report Type: 
  Country: None (occurrence: None)
  Receive Date: 20120530
  Receipt Date: 20120530
  Transmission Date: 20120825
  Serious: Yes (Other)
  Sender: FDA-Public Use
  Company Number: None

PATIENT
  Age: 52 Year
  Sex: Male
  Weight: 84.8226 kg

DRUGS (1)
  1. IMDUR [Suspect]

REACTIONS (9)
  - HYPOAESTHESIA [None]
  - DIZZINESS [None]
  - MALAISE [None]
  - PRURITUS [None]
  - DYSPNOEA [None]
  - BEDRIDDEN [None]
  - COLD SWEAT [None]
  - HEADACHE [None]
  - MUSCLE SPASMS [None]
